FAERS Safety Report 4381080-9 (Version None)
Quarter: 2004Q2

REPORT INFORMATION
  Report Type: 
  Country: None (occurrence: None)
  Receive Date: 20040601
  Receipt Date: 20040302
  Transmission Date: 20050107
  Serious: No
  Sender: FDA-Public Use
  Company Number: FABR-10475

PATIENT
  Age: 65 Year
  Sex: Male
  Weight: 67.586 kg

DRUGS (7)
  1. FABRAZYME [Suspect]
     Indication: FABRY'S DISEASE
     Dosage: 70 MG Q2WKS IV
     Route: 042
     Dates: start: 20031014
  2. DIPHENHYDRAMINE HCL [Concomitant]
  3. ASPIRIN [Concomitant]
  4. WARFARIN SODIUM [Concomitant]
  5. LISINOPRIL [Concomitant]
  6. FLONASE [Concomitant]
  7. ATROVENT NASAL [Concomitant]

REACTIONS (5)
  - DISTURBANCE IN ATTENTION [None]
  - FEELING ABNORMAL [None]
  - LETHARGY [None]
  - MENTAL IMPAIRMENT [None]
  - SEDATION [None]
